FAERS Safety Report 15590740 (Version 2)
Quarter: 2018Q4

REPORT INFORMATION
  Report Type: Spontaneous
  Country: US (occurrence: US)
  Receive Date: 20181106
  Receipt Date: 20181226
  Transmission Date: 20190205
  Serious: Yes (Other)
  Sender: FDA-Public Use
  Company Number: US-UPSHER-SMITH LABORATORIES, LLC-2018USL00520

PATIENT
  Age: 75 Year
  Sex: Female
  Weight: 119.46 kg

DRUGS (9)
  1. UNSPECIFIED CREAM TO BALANCE HER HORMONES [Concomitant]
     Route: 061
  2. FUROSEMIDE. [Concomitant]
     Active Substance: FUROSEMIDE
     Dosage: 40 MG, 1X/DAY AS NEEDED
     Route: 048
     Dates: start: 20181004
  3. PROAIR HFA [Concomitant]
     Active Substance: ALBUTEROL SULFATE
     Dosage: UNK
  4. ALBUTEROL SULFATE. [Concomitant]
     Active Substance: ALBUTEROL SULFATE
     Dosage: 3 ML, AS NEEDED
     Dates: start: 20181004
  5. POTASSIUM CHLORIDE. [Suspect]
     Active Substance: POTASSIUM CHLORIDE
     Indication: ELECTROLYTE SUBSTITUTION THERAPY
     Dosage: 20 MEQ, ONCE
     Route: 048
     Dates: start: 2018
  6. TWO UNSPECIFIED WATER PILLS [Concomitant]
  7. MUPIROCIN. [Concomitant]
     Active Substance: MUPIROCIN
     Dosage: UNK, 3X/DAY
     Route: 061
     Dates: start: 20181004
  8. UNSPECIFIED ASTHMA SPRAY [Concomitant]
  9. TRIAMCINOLONE ACETONIDE. [Concomitant]
     Active Substance: TRIAMCINOLONE ACETONIDE
     Dosage: UNK, 2X/DAY
     Route: 061
     Dates: start: 20181004

REACTIONS (15)
  - Drug interaction [Unknown]
  - Bronchitis [Unknown]
  - Lung disorder [Unknown]
  - Dyspnoea [Unknown]
  - Hypoxia [Unknown]
  - Choking [Unknown]
  - Haemoptysis [Recovered/Resolved]
  - Pharyngitis streptococcal [Unknown]
  - Tissue injury [Not Recovered/Not Resolved]
  - Muscle spasms [Unknown]
  - Throat irritation [Not Recovered/Not Resolved]
  - Foaming at mouth [Unknown]
  - Cough [Unknown]
  - Nasopharyngitis [Unknown]
  - Drug ineffective [Unknown]

NARRATIVE: CASE EVENT DATE: 2018
